FAERS Safety Report 20588953 (Version 1)
Quarter: 2022Q1

REPORT INFORMATION
  Report Type: Report from Study
  Country: PH (occurrence: PH)
  Receive Date: 20220314
  Receipt Date: 20220314
  Transmission Date: 20220423
  Serious: Yes (Death, Life-Threatening, Hospitalization, Other)
  Sender: FDA-Public Use
  Company Number: PH-JNJFOC-20220206347

PATIENT
  Age: 76 Year
  Sex: Male

DRUGS (4)
  1. BORTEZOMIB [Suspect]
     Active Substance: BORTEZOMIB
     Indication: Plasma cell myeloma
     Dosage: 2 MILLIGRAM, 1/WEEK
     Route: 058
     Dates: start: 202201, end: 202201
  2. THALIDOMIDE [Concomitant]
     Active Substance: THALIDOMIDE
     Indication: Chemotherapy
     Dosage: 100 MILLIGRAM, QD
     Route: 065
     Dates: start: 202201
  3. DEXAMETHASONE [Concomitant]
     Active Substance: DEXAMETHASONE
     Indication: Chemotherapy
     Dosage: 8 MILLIGRAM, QD
     Route: 065
     Dates: start: 202201
  4. ACYCLOVIR [Concomitant]
     Active Substance: ACYCLOVIR
     Indication: Chemotherapy
     Dosage: UNK
     Route: 065
     Dates: start: 202201

REACTIONS (2)
  - Death [Fatal]
  - Coma [Not Recovered/Not Resolved]

NARRATIVE: CASE EVENT DATE: 20220101
